FAERS Safety Report 15202308 (Version 4)
Quarter: 2020Q2

REPORT INFORMATION
  Report Type: Report from Study
  Country: US (occurrence: US)
  Receive Date: 20180726
  Receipt Date: 20200521
  Transmission Date: 20200713
  Serious: Yes (Other)
  Sender: FDA-Public Use
  Company Number: PHHY2018US051993

PATIENT
  Age: 61 Year
  Sex: Female

DRUGS (1)
  1. GILENYA [Suspect]
     Active Substance: FINGOLIMOD HYDROCHLORIDE
     Indication: MULTIPLE SCLEROSIS
     Dosage: UNK, QD
     Route: 048

REACTIONS (8)
  - Bronchitis [Unknown]
  - Cough [Unknown]
  - Lymphocyte count decreased [Unknown]
  - Headache [Not Recovered/Not Resolved]
  - White blood cell count decreased [Unknown]
  - Influenza [Unknown]
  - Vertigo [Not Recovered/Not Resolved]
  - Constipation [Not Recovered/Not Resolved]

NARRATIVE: CASE EVENT DATE: 20180612
